FAERS Safety Report 8154806-6 (Version None)
Quarter: 2012Q1

REPORT INFORMATION
  Report Type: 
  Country: None (occurrence: None)
  Receive Date: 20120221
  Receipt Date: 20120209
  Transmission Date: 20120608
  Serious: Yes (Hospitalization, Other)
  Sender: FDA-Public Use
  Company Number: PHHY2012JP012441

PATIENT
  Age: 11 Year
  Sex: Male

DRUGS (5)
  1. NEORAL [Suspect]
     Indication: AUTOIMMUNE HEPATITIS
     Dosage: 150 MG, DAILY
     Route: 048
     Dates: end: 20111101
  2. NEORAL [Suspect]
     Dosage: 100 MG, DAILY
     Route: 048
  3. NEORAL [Suspect]
     Dosage: 75 MG, DAILY
     Route: 048
  4. NEORAL [Suspect]
     Dosage: 125 MG, DAILY (50MG IN THE MORNING, 75MG IN THE EVENING)
     Route: 048
     Dates: start: 20111101
  5. NEORAL [Suspect]
     Dosage: 100 MG, DAILY
     Route: 048

REACTIONS (4)
  - RENAL FAILURE ACUTE [None]
  - DEHYDRATION [None]
  - GASTROENTERITIS [None]
  - IMMUNOSUPPRESSANT DRUG LEVEL INCREASED [None]
